FAERS Safety Report 7248749-X (Version None)
Quarter: 2011Q1

REPORT INFORMATION
  Report Type: 
  Country: None (occurrence: None)
  Receive Date: 20110128
  Receipt Date: 20110124
  Transmission Date: 20110831
  Serious: Yes (Hospitalization)
  Sender: FDA-Public Use
  Company Number: US-BAYER-200928059NA

PATIENT
  Sex: Female

DRUGS (4)
  1. TYSABRI [Concomitant]
     Dates: start: 20080101
  2. NAPROXEN [Concomitant]
     Indication: ARTHRITIS
  3. TYLENOL W/ CODEINE NO. 3 [Concomitant]
     Indication: ARTHRITIS
  4. BETASERON [Suspect]
     Indication: PRODUCT USED FOR UNKNOWN INDICATION
     Dosage: LOWEST DOSE
     Route: 058
     Dates: start: 19950101, end: 20060101

REACTIONS (5)
  - EPISTAXIS [None]
  - CONTUSION [None]
  - POSTMENOPAUSAL HAEMORRHAGE [None]
  - BLOOD DISORDER [None]
  - LEUKAEMIA [None]
